FAERS Safety Report 7649110-6 (Version None)
Quarter: 2011Q3

REPORT INFORMATION
  Report Type: 
  Country: None (occurrence: None)
  Receive Date: 20110802
  Receipt Date: 20110719
  Transmission Date: 20111222
  Serious: No
  Sender: FDA-Public Use
  Company Number: US-B.I. PHARMACEUTICALS,INC./RIDGEFIELD-2011-BP-18085BP

PATIENT
  Sex: Male

DRUGS (2)
  1. ZANTAC 150 [Suspect]
     Indication: DYSPEPSIA
     Dates: start: 20110718
  2. ZANTAC 150 [Suspect]
     Dosage: 450 MG
     Dates: start: 20110719, end: 20110719

REACTIONS (1)
  - NO ADVERSE EVENT [None]
